FAERS Safety Report 10840586 (Version 1)
Quarter: 2015Q1

REPORT INFORMATION
  Report Type: Spontaneous
  Country: US (occurrence: None)
  Receive Date: 20150218
  Receipt Date: 20150218
  Transmission Date: 20150721
  Serious: Yes (Other)
  Sender: FDA-Public Use
  Company Number: None

PATIENT
  Age: 71 Year
  Sex: Female

DRUGS (1)
  1. STELARA [Suspect]
     Active Substance: USTEKINUMAB
     Indication: PSORIASIS
     Dosage: 45MG, EVERY 3 MONTHS, SUBCUTANEOUSLY
     Route: 058
     Dates: start: 20140924, end: 20141101

REACTIONS (2)
  - Unable to afford prescribed medication [None]
  - Therapy cessation [None]

NARRATIVE: CASE EVENT DATE: 20141101
